FAERS Safety Report 9082563 (Version 1)
Quarter: 2013Q1

REPORT INFORMATION
  Report Type: Report from Study
  Country: US (occurrence: US)
  Receive Date: 20130131
  Receipt Date: 20130131
  Transmission Date: 20140127
  Serious: No
  Sender: FDA-Public Use
  Company Number: US-ABBOTT-12P-163-0994235-00

PATIENT
  Sex: Female
  Weight: 56.75 kg

DRUGS (16)
  1. HUMIRA [Suspect]
     Indication: RHEUMATOID ARTHRITIS
  2. HUMIRA [Suspect]
     Indication: OSTEOARTHRITIS
  3. METANX [Concomitant]
     Indication: VITAMIN SUPPLEMENTATION
  4. THEOPHYLLINE [Concomitant]
     Indication: ASTHMA
  5. FUROSEMIDE (NON-ABBOTT) [Concomitant]
     Indication: FLUID RETENTION
  6. SYNTHROID [Concomitant]
     Indication: HYPOTHYROIDISM
  7. ENABLEX (NON-ABBOTT) [Concomitant]
     Indication: URINARY INCONTINENCE
  8. AMITIZA [Concomitant]
     Indication: INADEQUATE LUBRICATION
  9. ARAVA [Concomitant]
     Indication: RHEUMATOID ARTHRITIS
  10. FOLIC ACID [Concomitant]
     Indication: VITAMIN SUPPLEMENTATION
  11. LEVOCETIRIZINE (NON-ABBOTT) [Concomitant]
     Indication: SEASONAL ALLERGY
  12. CITALOPRAM (NON-ABBOTT) [Concomitant]
     Indication: DEPRESSION
  13. POTASSIUM (NON-ABBOTT) [Concomitant]
     Indication: BLOOD POTASSIUM DECREASED
  14. CYCLOBENZAPRINE (NON-ABBOTT) [Concomitant]
     Indication: MUSCLE SPASMS
  15. LUNESTA [Concomitant]
     Indication: INSOMNIA
  16. METHADONE (NON-ABBOTT) [Concomitant]
     Indication: PAIN

REACTIONS (6)
  - Off label use [Not Recovered/Not Resolved]
  - Swelling [Not Recovered/Not Resolved]
  - Drug ineffective [Not Recovered/Not Resolved]
  - Pain [Not Recovered/Not Resolved]
  - Oedema peripheral [Not Recovered/Not Resolved]
  - Local swelling [Not Recovered/Not Resolved]
